FAERS Safety Report 17142842 (Version 1)
Quarter: 2019Q4

REPORT INFORMATION
  Report Type: Spontaneous
  Country: US (occurrence: US)
  Receive Date: 20191119
  Receipt Date: 20191119
  Transmission Date: 20200122
  Serious: No
  Sender: FDA-Public Use
  Company Number: None

PATIENT
  Age: 69 Year
  Sex: Male

DRUGS (1)
  1. WARFARIN [Suspect]
     Active Substance: WARFARIN
     Dosage: ?          OTHER DOSE:GM;?
     Route: 048

REACTIONS (7)
  - Haematuria [None]
  - Haemoglobin decreased [None]
  - Chromaturia [None]
  - Product substitution issue [None]
  - International normalised ratio increased [None]
  - Transaminases increased [None]
  - Haemorrhage [None]

NARRATIVE: CASE EVENT DATE: 20190919
